FAERS Safety Report 6698823-1 (Version None)
Quarter: 2010Q2

REPORT INFORMATION
  Report Type: 
  Country: None (occurrence: None)
  Receive Date: 20100427
  Receipt Date: 20100420
  Transmission Date: 20101027
  Serious: Yes (Other)
  Sender: FDA-Public Use
  Company Number: PHHY2010BR19312

PATIENT
  Sex: Female

DRUGS (1)
  1. FORASEQ [Suspect]

REACTIONS (5)
  - DEVICE MALFUNCTION [None]
  - MYOPIA [None]
  - PRODUCT QUALITY ISSUE [None]
  - SURGERY [None]
  - VISUAL ACUITY REDUCED [None]
